FAERS Safety Report 11116828 (Version 1)
Quarter: 2015Q2

REPORT INFORMATION
  Report Type: Spontaneous
  Country: US (occurrence: US)
  Receive Date: 20150515
  Receipt Date: 20150515
  Transmission Date: 20150821
  Serious: Yes (Other)
  Sender: FDA-Public Use
  Company Number: US-PFIZER INC-2015163419

PATIENT
  Age: 68 Year
  Sex: Male
  Weight: 91 kg

DRUGS (1)
  1. LATANOPROST. [Suspect]
     Active Substance: LATANOPROST

REACTIONS (9)
  - Drug dose omission [Unknown]
  - Anger [Unknown]
  - Eating disorder [Unknown]
  - General physical health deterioration [Unknown]
  - Violence-related symptom [Unknown]
  - Weight decreased [Unknown]
  - Glaucoma [Unknown]
  - Suicidal ideation [Unknown]
  - Product quality issue [Unknown]
